FAERS Safety Report 5087479-X (Version None)
Quarter: 2006Q3

REPORT INFORMATION
  Report Type: 
  Country: None (occurrence: None)
  Receive Date: 20060727
  Receipt Date: 20060526
  Transmission Date: 20061208
  Serious: Yes (Other)
  Sender: FDA-Public Use
  Company Number: 2006058724

PATIENT
  Age: 42 Year
  Sex: Female
  Weight: 53.5244 kg

DRUGS (5)
  1. LYRICA [Suspect]
     Indication: PAIN
     Dosage: 100 MG (50 MG, 2 IN D), ORAL
     Route: 048
     Dates: start: 20060418, end: 20060424
  2. ARGININE (ARGININE) [Suspect]
     Indication: ILL-DEFINED DISORDER
  3. SUNSCREEN (BUTYL METHOXYDIBENZOYLMETHANE, OCTINOXATE) [Suspect]
     Indication: ILL-DEFINED DISORDER
  4. CONTRACEPTIVE UNSPECIFIED [Concomitant]
  5. ALL OTHER THERAPEUTIC PRODUCTS [Concomitant]

REACTIONS (3)
  - BURNING SENSATION [None]
  - HYPERSENSITIVITY [None]
  - VITAMIN D DEFICIENCY [None]
